FAERS Safety Report 5399467-4 (Version None)
Quarter: 2007Q3

REPORT INFORMATION
  Report Type: 
  Country: None (occurrence: None)
  Receive Date: 20070727
  Receipt Date: 20070726
  Transmission Date: 20080115
  Serious: Yes (Other)
  Sender: FDA-Public Use
  Company Number: BR-SHR-BR-2007-003113

PATIENT
  Age: 48 Year
  Sex: Female

DRUGS (1)
  1. BETASERON [Suspect]
     Dosage: 9.6 MIU, EVERY 2D
     Route: 058
     Dates: start: 20020901

REACTIONS (2)
  - BLOOD PRESSURE FLUCTUATION [None]
  - SPEECH DISORDER [None]
